FAERS Safety Report 5325776-0 (Version None)
Quarter: 2007Q2

REPORT INFORMATION
  Report Type: 
  Country: None (occurrence: None)
  Receive Date: 20070510
  Receipt Date: 20070507
  Transmission Date: 20071010
  Serious: Yes (Hospitalization)
  Sender: FDA-Public Use
  Company Number: E2090-00094-CLI-DE

PATIENT
  Age: 50 Year
  Sex: Male
  Weight: 81 kg

DRUGS (9)
  1. ZONEGRAN [Suspect]
     Indication: EPILEPSY
     Dosage: SEE IMAGE, ORAL
     Route: 048
     Dates: start: 20060823, end: 20060829
  2. ZONEGRAN [Suspect]
     Indication: EPILEPSY
     Dosage: SEE IMAGE, ORAL
     Route: 048
     Dates: start: 20060830, end: 20060912
  3. ZONEGRAN [Suspect]
     Indication: EPILEPSY
     Dosage: SEE IMAGE, ORAL
     Route: 048
     Dates: start: 20060920, end: 20060920
  4. ZONEGRAN [Suspect]
     Indication: EPILEPSY
     Dosage: SEE IMAGE, ORAL
     Route: 048
     Dates: start: 20060921, end: 20060926
  5. ZONEGRAN [Suspect]
     Indication: EPILEPSY
     Dosage: SEE IMAGE, ORAL
     Route: 048
     Dates: start: 20060927, end: 20061010
  6. CARBAMAZEPINE [Suspect]
     Indication: DRUG USE FOR UNKNOWN INDICATION
     Dosage: 1.6 GM.; 1.4 GM; 1.6 GM, ORAL
     Route: 048
     Dates: start: 20010101, end: 20060911
  7. CARBAMAZEPINE [Suspect]
     Indication: DRUG USE FOR UNKNOWN INDICATION
     Dosage: 1.6 GM.; 1.4 GM; 1.6 GM, ORAL
     Route: 048
     Dates: start: 20060912, end: 20060916
  8. CARBAMAZEPINE [Suspect]
     Indication: DRUG USE FOR UNKNOWN INDICATION
     Dosage: 1.6 GM.; 1.4 GM; 1.6 GM, ORAL
     Route: 048
     Dates: start: 20060917
  9. VALPROIC ACID [Concomitant]

REACTIONS (7)
  - ANTICONVULSANT DRUG LEVEL INCREASED [None]
  - CEREBELLAR SYNDROME [None]
  - DIPLOPIA [None]
  - DRUG INTERACTION [None]
  - DRUG LEVEL INCREASED [None]
  - DRUG TOXICITY [None]
  - NYSTAGMUS [None]
